FAERS Safety Report 8071194-4 (Version None)
Quarter: 2011Q4

REPORT INFORMATION
  Report Type: 
  Country: None (occurrence: None)
  Receive Date: 20111221
  Receipt Date: 20110914
  Transmission Date: 20120403
  Serious: Yes (Other)
  Sender: FDA-Public Use
  Company Number: PHHY2010US64267

PATIENT
  Age: 34 Year
  Sex: Female
  Weight: 62.5 kg

DRUGS (2)
  1. EXJADE [Suspect]
     Indication: SICKLE CELL ANAEMIA
     Dosage: 1250 MG, ORAL, 250 MG, TID, ORAL
     Route: 048
     Dates: start: 20100801
  2. EXJADE [Suspect]
     Indication: SICKLE CELL ANAEMIA
     Dosage: 1250 MG, ORAL, 250 MG, TID, ORAL
     Route: 048
     Dates: start: 20100701

REACTIONS (5)
  - GASTRIC ULCER [None]
  - NAUSEA [None]
  - DIARRHOEA [None]
  - ABDOMINAL DISCOMFORT [None]
  - ABDOMINAL PAIN UPPER [None]
